FAERS Safety Report 9530803 (Version 1)
Quarter: 2013Q3

REPORT INFORMATION
  Report Type: Spontaneous
  Country: US (occurrence: None)
  Receive Date: 20130916
  Receipt Date: 20130916
  Transmission Date: 20140515
  Serious: Yes (Other)
  Sender: FDA-Public Use
  Company Number: None

PATIENT
  Age: 78 Year
  Sex: Female
  Weight: 77.4 kg

DRUGS (9)
  1. RIVAROXABAN [Suspect]
     Route: 048
     Dates: start: 20130505
  2. FUROSEMIDE [Concomitant]
  3. HYDRALAZINE [Concomitant]
  4. ISOSORBIDE [Concomitant]
  5. LISINOPRIL [Concomitant]
  6. METOPROLOL [Concomitant]
  7. CRESTOR [Concomitant]
  8. ASPIRIN [Concomitant]
  9. CLONIDINE [Concomitant]

REACTIONS (5)
  - Asthenia [None]
  - Gastrointestinal haemorrhage [None]
  - Vomiting [None]
  - Mouth haemorrhage [None]
  - Lip haemorrhage [None]
